FAERS Safety Report 17461102 (Version 2)
Quarter: 2020Q1

REPORT INFORMATION
  Report Type: Other
  Country: FR (occurrence: FR)
  Receive Date: 20200226
  Receipt Date: 20200227
  Transmission Date: 20200409
  Serious: Yes (Death, Hospitalization, Other)
  Sender: FDA-Public Use
  Company Number: FR-COVIS PHARMA B.V.-2020COV00083

PATIENT
  Age: 71 Year
  Sex: Male

DRUGS (24)
  1. MIANSERIN HYDROCHLORIDE [Suspect]
     Active Substance: MIANSERIN HYDROCHLORIDE
     Dosage: 60 MG, 1X/DAY
     Route: 048
  2. ACETAMINOPHEN. [Suspect]
     Active Substance: ACETAMINOPHEN
     Dosage: 100 MG
     Route: 048
  3. ACETAMINOPHEN. [Suspect]
     Active Substance: ACETAMINOPHEN
     Dosage: 1000 MG, 2X/DAY
     Route: 048
  4. PIPAMPERONE [Suspect]
     Active Substance: PIPAMPERONE
     Dosage: 20 MG, 1X/DAY
     Route: 048
  5. PREDNAZOLINE [Suspect]
     Active Substance: PREDNAZOLINE
     Dosage: 1 PUFF, 1X/DAY
  6. SALMETEROL XINAFOATE [Suspect]
     Active Substance: SALMETEROL XINAFOATE
     Dosage: 1 PUFF, 2X/DAY
  7. CLONAZEPAM. [Suspect]
     Active Substance: CLONAZEPAM
     Dosage: 4 MG, 1X/DAY
     Route: 048
  8. CELEBREX [Suspect]
     Active Substance: CELECOXIB
  9. OMEPRAZOLE MAGNESIUM. [Suspect]
     Active Substance: OMEPRAZOLE MAGNESIUM
     Dosage: 20 MG, 1X/DAY
     Route: 048
  10. PROPRANOLOL [Suspect]
     Active Substance: PROPRANOLOL HYDROCHLORIDE
     Dosage: 20 MG, 1X/DAY
     Route: 048
  11. LASIX [Suspect]
     Active Substance: FUROSEMIDE
     Dosage: 40 MG, 1X/DAY
     Route: 048
  12. NITROGLYCERIN. [Suspect]
     Active Substance: NITROGLYCERIN
     Dosage: 10 MG, 1X/DAY
     Route: 048
  13. SALBUTAMOL [Suspect]
     Active Substance: ALBUTEROL
  14. VERAPAMIL HYDROCHLORIDE. [Suspect]
     Active Substance: VERAPAMIL HYDROCHLORIDE
     Dosage: 240 MG
     Route: 048
  15. ZOPICLONE [Suspect]
     Active Substance: ZOPICLONE
     Dosage: 15 MG, 1X/DAY
     Route: 048
  16. ASPIRIN. [Suspect]
     Active Substance: ASPIRIN
     Dosage: 250 MG, 1X/DAY
     Route: 048
  17. DIACEREIN [Suspect]
     Active Substance: DIACEREIN
     Dosage: 50 MG, 2X/DAY
     Route: 048
  18. NITROGLYCERIN. [Suspect]
     Active Substance: NITROGLYCERIN
     Dosage: 10 MG, 1X/DAY
  19. RAMIPRIL. [Suspect]
     Active Substance: RAMIPRIL
     Dosage: 5 MG, 1X/DAY
     Route: 048
  20. TRIHEXYPHENIDYL [Suspect]
     Active Substance: TRIHEXYPHENIDYL
     Dosage: 1 DF
     Route: 048
  21. MACROGOL [Suspect]
     Active Substance: POLYETHYLENE GLYCOLS
     Indication: PRODUCT USED FOR UNKNOWN INDICATION
     Dosage: 2 DF, 1X/DAY
     Route: 048
  22. SIMVASTATIN. [Suspect]
     Active Substance: SIMVASTATIN
     Dosage: 20 MG, 1X/DAY
     Route: 048
  23. CLOBAZAM. [Suspect]
     Active Substance: CLOBAZAM
     Dosage: 10 MG, 3X/DAY
     Route: 048
  24. OXYGEN. [Concomitant]
     Active Substance: OXYGEN

REACTIONS (11)
  - Cerebrovascular accident [Fatal]
  - Brain scan abnormal [Fatal]
  - Cerebral artery thrombosis [Fatal]
  - Respiratory failure [Fatal]
  - Ischaemic stroke [Fatal]
  - Respiratory distress [Fatal]
  - Facial paralysis [Unknown]
  - Nausea [Fatal]
  - Disease recurrence [Fatal]
  - Areflexia [Fatal]
  - Hemiplegia [Unknown]
